FAERS Safety Report 6744913-4 (Version None)
Quarter: 2010Q2

REPORT INFORMATION
  Report Type: 
  Country: None (occurrence: None)
  Receive Date: 20100527
  Receipt Date: 20100519
  Transmission Date: 20101027
  Serious: Yes (Other)
  Sender: FDA-Public Use
  Company Number: US-ABBOTT-10P-163-0646180-00

PATIENT
  Sex: Female
  Weight: 65.83 kg

DRUGS (21)
  1. HUMIRA [Suspect]
     Indication: CROHN'S DISEASE
     Dates: start: 20100119
  2. HUMIRA [Suspect]
     Indication: ARTHRITIS ENTEROPATHIC
  3. HUMIRA [Suspect]
     Indication: PSORIASIS
  4. TOPAMAX [Concomitant]
     Indication: DRUG USE FOR UNKNOWN INDICATION
  5. PEPCID [Concomitant]
     Indication: DRUG USE FOR UNKNOWN INDICATION
  6. ACIPHEX [Concomitant]
     Indication: DRUG USE FOR UNKNOWN INDICATION
  7. ALLEGRA [Concomitant]
     Indication: HYPERSENSITIVITY
  8. CELEBREX [Concomitant]
     Indication: ARTHRALGIA
  9. FOLIC ACID [Concomitant]
     Indication: DRUG USE FOR UNKNOWN INDICATION
  10. LASIX [Concomitant]
     Indication: FLUID RETENTION
  11. BENTYL [Concomitant]
     Indication: DRUG USE FOR UNKNOWN INDICATION
  12. TRAMADOL HCL [Concomitant]
     Indication: ARTHRALGIA
  13. VICODIN [Concomitant]
     Indication: ARTHRALGIA
  14. CALCIUM CITRATE WITH VITAMIN D [Concomitant]
     Indication: MINERAL SUPPLEMENTATION
  15. MULTI-VITAMIN [Concomitant]
     Indication: VITAMIN SUPPLEMENTATION
  16. VITAMIN C [Concomitant]
     Indication: VITAMIN SUPPLEMENTATION
  17. VITAMIN D [Concomitant]
     Indication: VITAMIN SUPPLEMENTATION
  18. MOTRIN [Concomitant]
     Indication: PAIN
  19. MOTRIN [Concomitant]
     Indication: CROHN'S DISEASE
  20. TYLENOL (CAPLET) [Concomitant]
     Indication: PAIN
  21. TYLENOL (CAPLET) [Concomitant]
     Indication: CROHN'S DISEASE

REACTIONS (6)
  - IMPAIRED HEALING [None]
  - INCREASED TENDENCY TO BRUISE [None]
  - INJECTION SITE HAEMATOMA [None]
  - INJECTION SITE PAIN [None]
  - INJECTION SITE URTICARIA [None]
  - PORTAL HYPERTENSION [None]
